FAERS Safety Report 8235275-4 (Version None)
Quarter: 2012Q1

REPORT INFORMATION
  Report Type: 
  Country: None (occurrence: None)
  Receive Date: 20120326
  Receipt Date: 20120316
  Transmission Date: 20120608
  Serious: Yes (Hospitalization, Other)
  Sender: FDA-Public Use
  Company Number: FR-BRISTOL-MYERS SQUIBB COMPANY-16465056

PATIENT
  Age: 86 Year
  Sex: Female

DRUGS (20)
  1. MICONAZOLE [Interacting]
     Indication: ORAL FUNGAL INFECTION
     Dosage: DAKTARIN 2 PER CENT, BUCCAL GEL
     Route: 048
     Dates: start: 20120104, end: 20120111
  2. FOLIC ACID [Concomitant]
  3. ASPIRIN [Interacting]
     Indication: ATRIAL FIBRILLATION
     Dosage: POWDER FOR ORAL SOLUTION IN SACHET-DOSE, 1 DOSAGE FORM = ONE SACHET
     Route: 048
  4. ASPIRIN [Interacting]
     Indication: HYPERTENSION
     Dosage: POWDER FOR ORAL SOLUTION IN SACHET-DOSE, 1 DOSAGE FORM = ONE SACHET
     Route: 048
  5. VITAMIN D [Concomitant]
  6. SPIRONOLACTONE [Concomitant]
  7. IRON [Concomitant]
  8. POLYETHYLENE GLYCOL [Concomitant]
     Dosage: MACROGOL 4000
  9. TRAMADOL HCL [Concomitant]
  10. ACETAMINOPHEN [Concomitant]
  11. COUMADIN [Interacting]
     Indication: DEEP VEIN THROMBOSIS
     Route: 048
     Dates: start: 20110110, end: 20120111
  12. FUROSEMIDE [Concomitant]
  13. AMIODARONE HCL [Concomitant]
  14. LYSINE ACETYLSALICYLATE [Concomitant]
  15. CITALOPRAM HYDROBROMIDE [Concomitant]
  16. LABETALOL HCL [Concomitant]
  17. LANSOPRAZOLE [Concomitant]
  18. MAPROTILINE [Concomitant]
  19. COUMADIN [Suspect]
     Indication: ATRIAL FIBRILLATION
     Route: 048
     Dates: start: 20110110, end: 20120111
  20. ASPIRIN [Interacting]
     Indication: DEEP VEIN THROMBOSIS
     Dosage: POWDER FOR ORAL SOLUTION IN SACHET-DOSE, 1 DOSAGE FORM = ONE SACHET
     Route: 048

REACTIONS (4)
  - DRUG INTERACTION [None]
  - HAEMATOMA [None]
  - EPISTAXIS [None]
  - INTERNATIONAL NORMALISED RATIO INCREASED [None]
